FAERS Safety Report 9152076 (Version 4)
Quarter: 2013Q3

REPORT INFORMATION
  Report Type: Report from Study
  Country: FI (occurrence: FI)
  Receive Date: 20130308
  Receipt Date: 20130717
  Transmission Date: 20140515
  Serious: Yes (Hospitalization, Other)
  Sender: FDA-Public Use
  Company Number: FI-ELI_LILLY_AND_COMPANY-FI201301009086

PATIENT
  Age: 80 Year
  Sex: Male

DRUGS (15)
  1. TERIPARATIDE [Suspect]
     Dosage: 20 UG, QD
     Route: 058
     Dates: start: 20120528
  2. CALCICHEW [Concomitant]
     Indication: MEDICAL DIET
     Dosage: 500 MG, BID
  3. JANUMET [Concomitant]
     Indication: DIABETES MELLITUS
     Dosage: UNK, BID
  4. CARDACE [Concomitant]
     Indication: HYPERTENSION
     Dosage: 5 MG, QD
  5. MAREVAN [Concomitant]
  6. NORVASC [Concomitant]
     Indication: HYPERTENSION
     Dosage: 5 MG, QD
  7. OPTINATE [Concomitant]
     Dosage: 35 MG, QD
  8. PREDNISOLON [Concomitant]
     Dosage: 0.5 DF, QD
  9. SOMAC [Concomitant]
     Indication: PROPHYLAXIS
     Dosage: 40 MG, QD
  10. TREXAN [Concomitant]
     Dosage: UNK, WEEKLY (1/W)
  11. HUMIRA [Concomitant]
     Indication: RHEUMATOID ARTHRITIS
     Dosage: UNK, EVERY SECOND WEEK
  12. TRAMAL [Concomitant]
     Indication: PAIN
     Dosage: 100 MG, QD
  13. ARCOXIA [Concomitant]
     Indication: PAIN
     Dosage: 60 MG, QD
  14. MIRTATSAPIINI ENNAPHARMA [Concomitant]
     Indication: DEPRESSION
     Dosage: 30 MG, QD
  15. SPIRIVA [Concomitant]
     Indication: LUNG DISORDER

REACTIONS (11)
  - Decubitus ulcer [Not Recovered/Not Resolved]
  - Staphylococcal infection [Not Recovered/Not Resolved]
  - Wound infection [Not Recovered/Not Resolved]
  - General physical health deterioration [Unknown]
  - Weight decreased [Unknown]
  - Asthenia [Unknown]
  - Decreased appetite [Unknown]
  - Erythema [Unknown]
  - Depression [Unknown]
  - Wound [Unknown]
  - Wound [Unknown]
